FAERS Safety Report 13039238 (Version 1)
Quarter: 2016Q4

REPORT INFORMATION
  Report Type: Spontaneous
  Country: US (occurrence: US)
  Receive Date: 20161216
  Receipt Date: 20161216
  Transmission Date: 20170207
  Serious: Yes (Hospitalization)
  Sender: FDA-Public Use
  Company Number: None

PATIENT
  Age: 48 Year
  Sex: Male
  Weight: 105 kg

DRUGS (2)
  1. METHOTREXATE. [Suspect]
     Active Substance: METHOTREXATE
     Dates: end: 20160919
  2. ONCASPAR [Suspect]
     Active Substance: PEGASPARGASE
     Dates: end: 20160920

REACTIONS (6)
  - Thrombocytopenia [None]
  - Fatigue [None]
  - Vitamin B12 deficiency [None]
  - Haemoglobin decreased [None]
  - Neutropenia [None]
  - Dyspnoea [None]

NARRATIVE: CASE EVENT DATE: 20161212
